FAERS Safety Report 9985016 (Version 1)
Quarter: 2014Q1

REPORT INFORMATION
  Report Type: Report from Study
  Country: US (occurrence: US)
  Receive Date: 20140307
  Receipt Date: 20140307
  Transmission Date: 20141002
  Serious: No
  Sender: FDA-Public Use
  Company Number: US-ABBVIE-14P-163-1186434-00

PATIENT
  Age: 32 Year
  Sex: Female

DRUGS (5)
  1. HUMIRA [Suspect]
     Indication: COLITIS ULCERATIVE
     Dates: start: 20131202, end: 20131202
  2. HUMIRA [Suspect]
     Dates: start: 20131216, end: 20131216
  3. HUMIRA [Suspect]
  4. LIALDA [Concomitant]
     Indication: COLITIS ULCERATIVE
  5. FOLIC ACID [Concomitant]
     Indication: COLITIS ULCERATIVE

REACTIONS (3)
  - Inappropriate schedule of drug administration [Unknown]
  - Injection site bruising [Recovered/Resolved]
  - Injection site mass [Unknown]
